FAERS Safety Report 17970202 (Version 13)
Quarter: 2020Q4

REPORT INFORMATION
  Report Type: Spontaneous
  Country: CA (occurrence: CA)
  Receive Date: 20200701
  Receipt Date: 20201029
  Transmission Date: 20210113
  Serious: Yes (Hospitalization, Other)
  Sender: FDA-Public Use
  Company Number: CA-JNJFOC-20200635871

PATIENT
  Sex: Female

DRUGS (110)
  1. SIMPONI [Suspect]
     Active Substance: GOLIMUMAB
     Indication: COLITIS ULCERATIVE
     Route: 058
  2. SIMPONI [Suspect]
     Active Substance: GOLIMUMAB
     Indication: RHEUMATOID ARTHRITIS
  3. ACTEMRA [Suspect]
     Active Substance: TOCILIZUMAB
     Indication: RHEUMATOID ARTHRITIS
     Route: 042
  4. ARAVA [Suspect]
     Active Substance: LEFLUNOMIDE
     Indication: RHEUMATOID ARTHRITIS
     Route: 048
  5. RITUXAN [Suspect]
     Active Substance: RITUXIMAB
     Indication: RHEUMATOID ARTHRITIS
     Route: 042
  6. METHOTREXATE. [Suspect]
     Active Substance: METHOTREXATE
     Route: 065
  7. CERTOLIZUMAB PEGOL [Suspect]
     Active Substance: CERTOLIZUMAB PEGOL
     Indication: PRODUCT USED FOR UNKNOWN INDICATION
     Route: 058
  8. METHOTREXATE. [Concomitant]
     Active Substance: METHOTREXATE
     Indication: PRODUCT USED FOR UNKNOWN INDICATION
     Route: 058
  9. SYNTHROID [Concomitant]
     Active Substance: LEVOTHYROXINE SODIUM
     Indication: RHEUMATOID ARTHRITIS
     Route: 065
  10. XELJANZ [Concomitant]
     Active Substance: TOFACITINIB CITRATE
     Indication: RHEUMATOID ARTHRITIS
     Route: 065
  11. XELJANZ [Concomitant]
     Active Substance: TOFACITINIB CITRATE
     Route: 048
  12. NAPROXEN. [Concomitant]
     Active Substance: NAPROXEN
  13. REMICADE [Suspect]
     Active Substance: INFLIXIMAB
     Indication: ANKYLOSING SPONDYLITIS
  14. ORENCIA [Suspect]
     Active Substance: ABATACEPT
     Route: 065
  15. ORENCIA [Suspect]
     Active Substance: ABATACEPT
     Route: 042
  16. ORENCIA [Suspect]
     Active Substance: ABATACEPT
     Route: 065
  17. SULFASALAZINE. [Suspect]
     Active Substance: SULFASALAZINE
     Indication: PRODUCT USED FOR UNKNOWN INDICATION
     Route: 048
  18. HYDROXYCHLOROQUINE SULFATE. [Suspect]
     Active Substance: HYDROXYCHLOROQUINE SULFATE
     Indication: PRODUCT USED FOR UNKNOWN INDICATION
     Route: 048
  19. ORENCIA [Suspect]
     Active Substance: ABATACEPT
     Indication: RHEUMATOID ARTHRITIS
     Route: 065
  20. SULFASALAZINE. [Suspect]
     Active Substance: SULFASALAZINE
     Indication: PRODUCT USED FOR UNKNOWN INDICATION
  21. DESOXIMETASONE. [Suspect]
     Active Substance: DESOXIMETASONE
     Indication: RHEUMATOID ARTHRITIS
     Route: 065
  22. CODEINE [Concomitant]
     Active Substance: CODEINE
     Indication: PRODUCT USED FOR UNKNOWN INDICATION
     Route: 065
  23. CODEINE [Concomitant]
     Active Substance: CODEINE
  24. SIMPONI [Suspect]
     Active Substance: GOLIMUMAB
     Indication: ANKYLOSING SPONDYLITIS
     Route: 058
  25. ACTEMRA [Suspect]
     Active Substance: TOCILIZUMAB
     Route: 042
  26. ENBREL [Suspect]
     Active Substance: ETANERCEPT
     Route: 065
  27. HUMIRA [Suspect]
     Active Substance: ADALIMUMAB
     Indication: RHEUMATOID ARTHRITIS
     Route: 058
  28. HYDROXYCHLOROQUINE [Suspect]
     Active Substance: HYDROXYCHLOROQUINE
     Indication: RHEUMATOID ARTHRITIS
     Route: 065
  29. HYDROXYCHLOROQUINE [Suspect]
     Active Substance: HYDROXYCHLOROQUINE
     Route: 065
  30. ORENCIA [Suspect]
     Active Substance: ABATACEPT
     Route: 058
  31. PLAQUENIL                          /00072602/ [Suspect]
     Active Substance: HYDROXYCHLOROQUINE DIPHOSPHATE
     Indication: RHEUMATOID ARTHRITIS
     Route: 065
  32. SULFASALAZINE. [Suspect]
     Active Substance: SULFASALAZINE
     Route: 048
  33. RITUXIMAB. [Suspect]
     Active Substance: RITUXIMAB
     Indication: RHEUMATOID ARTHRITIS
     Route: 042
  34. RITUXIMAB. [Suspect]
     Active Substance: RITUXIMAB
     Route: 041
  35. APO-ACETAMINOPHEN [Suspect]
     Active Substance: ACETAMINOPHEN
     Indication: PRODUCT USED FOR UNKNOWN INDICATION
     Route: 065
  36. TOCILIZUMAB. [Suspect]
     Active Substance: TOCILIZUMAB
     Indication: PRODUCT USED FOR UNKNOWN INDICATION
  37. ENTYVIO [Suspect]
     Active Substance: VEDOLIZUMAB
     Indication: ANKYLOSING SPONDYLITIS
  38. PANADEINE CO [Concomitant]
     Active Substance: ACETAMINOPHEN\CODEINE PHOSPHATE
     Indication: PRODUCT USED FOR UNKNOWN INDICATION
  39. CAFFEINE. [Concomitant]
     Active Substance: CAFFEINE
  40. LEVOTHYROXINE. [Concomitant]
     Active Substance: LEVOTHYROXINE
  41. REMICADE [Suspect]
     Active Substance: INFLIXIMAB
     Indication: RHEUMATOID ARTHRITIS
     Route: 042
  42. ACETAMINOPHEN. [Suspect]
     Active Substance: ACETAMINOPHEN
     Indication: RHEUMATOID ARTHRITIS
     Route: 005
  43. CIMZIA [Suspect]
     Active Substance: CERTOLIZUMAB PEGOL
     Indication: RHEUMATOID ARTHRITIS
     Route: 058
  44. CIMZIA [Suspect]
     Active Substance: CERTOLIZUMAB PEGOL
     Indication: PRODUCT USED FOR UNKNOWN INDICATION
  45. ORENCIA [Suspect]
     Active Substance: ABATACEPT
     Route: 065
  46. SULFASALAZINE. [Suspect]
     Active Substance: SULFASALAZINE
     Route: 048
  47. APO-LEFLUNOMIDE [Suspect]
     Active Substance: LEFLUNOMIDE
     Indication: RHEUMATOID ARTHRITIS
     Route: 048
  48. APO-LEFLUNOMIDE [Suspect]
     Active Substance: LEFLUNOMIDE
     Route: 065
  49. APO-LEFLUNOMIDE [Suspect]
     Active Substance: LEFLUNOMIDE
     Route: 065
  50. PREDNISONE. [Suspect]
     Active Substance: PREDNISONE
     Indication: PRODUCT USED FOR UNKNOWN INDICATION
     Route: 048
  51. ENTYVIO [Suspect]
     Active Substance: VEDOLIZUMAB
     Indication: COLITIS ULCERATIVE
     Route: 042
  52. ACTEMRA [Suspect]
     Active Substance: TOCILIZUMAB
     Indication: RHEUMATOID ARTHRITIS
     Route: 065
  53. METHOTREXATE. [Concomitant]
     Active Substance: METHOTREXATE
     Route: 065
  54. SYNTHROID [Concomitant]
     Active Substance: LEVOTHYROXINE SODIUM
     Indication: PRODUCT USED FOR UNKNOWN INDICATION
  55. ACETAMINOPHEN AND CODEINE [Concomitant]
     Active Substance: ACETAMINOPHEN\CODEINE PHOSPHATE
     Indication: PRODUCT USED FOR UNKNOWN INDICATION
     Route: 065
  56. PHOSPHORIC ACID [Concomitant]
     Active Substance: PHOSPHORIC ACID
  57. FOLIC ACID. [Concomitant]
     Active Substance: FOLIC ACID
  58. TIMOLOL MALEATE. [Concomitant]
     Active Substance: TIMOLOL MALEATE
  59. HUMIRA [Suspect]
     Active Substance: ADALIMUMAB
     Indication: COLITIS ULCERATIVE
     Route: 065
  60. HUMIRA [Suspect]
     Active Substance: ADALIMUMAB
     Indication: ANKYLOSING SPONDYLITIS
  61. METHOTREXATE. [Suspect]
     Active Substance: METHOTREXATE
     Route: 065
  62. CELEBREX [Suspect]
     Active Substance: CELECOXIB
     Indication: RHEUMATOID ARTHRITIS
     Route: 065
  63. XELJANZ [Suspect]
     Active Substance: TOFACITINIB CITRATE
     Indication: RHEUMATOID ARTHRITIS
     Route: 065
  64. MELOXICAM. [Concomitant]
     Active Substance: MELOXICAM
     Indication: PRODUCT USED FOR UNKNOWN INDICATION
     Route: 065
  65. PREDNISONE. [Concomitant]
     Active Substance: PREDNISONE
     Route: 065
  66. ACETAMINOPHEN. [Concomitant]
     Active Substance: ACETAMINOPHEN
  67. MEPROBAMATE. [Concomitant]
     Active Substance: MEPROBAMATE
  68. SIMPONI [Suspect]
     Active Substance: GOLIMUMAB
     Indication: PRODUCT USED FOR UNKNOWN INDICATION
  69. ARAVA [Suspect]
     Active Substance: LEFLUNOMIDE
     Indication: PRODUCT USED FOR UNKNOWN INDICATION
     Route: 048
  70. ARAVA [Suspect]
     Active Substance: LEFLUNOMIDE
     Route: 065
  71. ENBREL [Suspect]
     Active Substance: ETANERCEPT
     Route: 065
  72. HYDROXYCHLOROQUINE [Suspect]
     Active Substance: HYDROXYCHLOROQUINE
     Route: 048
  73. ORENCIA [Suspect]
     Active Substance: ABATACEPT
     Indication: RHEUMATOID ARTHRITIS
     Route: 058
  74. SULFASALAZINE. [Suspect]
     Active Substance: SULFASALAZINE
     Indication: RHEUMATOID ARTHRITIS
     Route: 048
  75. HYDROXYCHLOROQUINE SULFATE. [Suspect]
     Active Substance: HYDROXYCHLOROQUINE SULFATE
     Route: 048
  76. METHOTREXATE. [Suspect]
     Active Substance: METHOTREXATE
     Route: 065
  77. HUMIRA [Suspect]
     Active Substance: ADALIMUMAB
     Indication: ANKYLOSING SPONDYLITIS
  78. ORENCIA [Suspect]
     Active Substance: ABATACEPT
     Route: 065
  79. METHOTREXATE. [Suspect]
     Active Substance: METHOTREXATE
     Indication: RHEUMATOID ARTHRITIS
     Route: 058
  80. PREDNISONE. [Concomitant]
     Active Substance: PREDNISONE
     Route: 065
  81. REMICADE [Suspect]
     Active Substance: INFLIXIMAB
     Indication: COLITIS ULCERATIVE
  82. ACETAMINOPHEN. [Suspect]
     Active Substance: ACETAMINOPHEN
     Route: 065
  83. APO-PREDNISONE [Suspect]
     Active Substance: PREDNISONE
     Indication: PRODUCT USED FOR UNKNOWN INDICATION
     Route: 048
  84. ENBREL [Suspect]
     Active Substance: ETANERCEPT
     Indication: RHEUMATOID ARTHRITIS
     Route: 065
  85. HYDROXYCHLOROQUINE [Suspect]
     Active Substance: HYDROXYCHLOROQUINE
     Route: 048
  86. METHOTREXATE. [Suspect]
     Active Substance: METHOTREXATE
     Indication: RHEUMATOID ARTHRITIS
     Route: 048
  87. HUMIRA [Suspect]
     Active Substance: ADALIMUMAB
     Indication: COLITIS ULCERATIVE
     Route: 065
  88. INFLIXIMAB [Suspect]
     Active Substance: INFLIXIMAB
     Indication: ANKYLOSING SPONDYLITIS
  89. ACETAMINOPHEN. [Suspect]
     Active Substance: ACETAMINOPHEN
     Indication: PRODUCT USED FOR UNKNOWN INDICATION
  90. RITUXIMAB. [Suspect]
     Active Substance: RITUXIMAB
     Indication: RHEUMATOID ARTHRITIS
     Route: 058
  91. PREDNISONE. [Suspect]
     Active Substance: PREDNISONE
     Indication: RHEUMATOID ARTHRITIS
     Route: 065
  92. METHOTREXATE. [Concomitant]
     Active Substance: METHOTREXATE
     Indication: RHEUMATOID ARTHRITIS
     Route: 058
  93. ACETAMINOPHEN W/CODEINE PHOSPHATE [Concomitant]
     Active Substance: ACETAMINOPHEN\CODEINE PHOSPHATE
  94. RAMIPRIL. [Concomitant]
     Active Substance: RAMIPRIL
  95. TYLENOL [Suspect]
     Active Substance: ACETAMINOPHEN
     Indication: RHEUMATOID ARTHRITIS
     Route: 065
  96. ACETAMINOPHEN. [Suspect]
     Active Substance: ACETAMINOPHEN
     Route: 065
  97. HYDROXYCHLOROQUINE SULFATE. [Suspect]
     Active Substance: HYDROXYCHLOROQUINE SULFATE
     Indication: RHEUMATOID ARTHRITIS
     Route: 065
  98. METHOTREXATE. [Suspect]
     Active Substance: METHOTREXATE
     Indication: RHEUMATOID ARTHRITIS
     Route: 065
  99. RITUXIMAB. [Suspect]
     Active Substance: RITUXIMAB
     Route: 058
  100. RITUXIMAB. [Suspect]
     Active Substance: RITUXIMAB
     Route: 065
  101. ENTYVIO [Suspect]
     Active Substance: VEDOLIZUMAB
     Indication: COLITIS ULCERATIVE
     Route: 042
  102. ENTYVIO [Suspect]
     Active Substance: VEDOLIZUMAB
     Indication: ANKYLOSING SPONDYLITIS
     Route: 065
  103. ORENCIA [Suspect]
     Active Substance: ABATACEPT
     Indication: RHEUMATOID ARTHRITIS
     Route: 042
  104. INFLIXIMAB [Suspect]
     Active Substance: INFLIXIMAB
     Indication: COLITIS ULCERATIVE
  105. FOLIC ACID. [Suspect]
     Active Substance: FOLIC ACID
     Indication: RHEUMATOID ARTHRITIS
     Route: 065
  106. METHOTREXATE. [Concomitant]
     Active Substance: METHOTREXATE
     Route: 058
  107. PREDNISONE. [Concomitant]
     Active Substance: PREDNISONE
     Indication: PRODUCT USED FOR UNKNOWN INDICATION
     Route: 065
  108. LEFLUNOMIDE. [Concomitant]
     Active Substance: LEFLUNOMIDE
     Route: 048
  109. XELJANZ [Concomitant]
     Active Substance: TOFACITINIB CITRATE
     Indication: RHEUMATOID ARTHRITIS
     Route: 048
  110. DORZOLAMIDE HYDROCHLORIDE. [Concomitant]
     Active Substance: DORZOLAMIDE HYDROCHLORIDE

REACTIONS (23)
  - Drug intolerance [Not Recovered/Not Resolved]
  - Drug ineffective [Not Recovered/Not Resolved]
  - Off label use [Not Recovered/Not Resolved]
  - Somnolence [Not Recovered/Not Resolved]
  - Joint swelling [Unknown]
  - Hand deformity [Unknown]
  - Hypersensitivity [Unknown]
  - Condition aggravated [Not Recovered/Not Resolved]
  - Adverse event [Unknown]
  - Malaise [Not Recovered/Not Resolved]
  - Sciatica [Unknown]
  - Injection site reaction [Unknown]
  - Dyspnoea [Unknown]
  - Gait disturbance [Not Recovered/Not Resolved]
  - Loss of personal independence in daily activities [Not Recovered/Not Resolved]
  - Peripheral swelling [Unknown]
  - Pain [Unknown]
  - Visual impairment [Not Recovered/Not Resolved]
  - Contraindicated product administered [Not Recovered/Not Resolved]
  - Arthropathy [Unknown]
  - Rheumatoid arthritis [Not Recovered/Not Resolved]
  - Therapeutic product effect decreased [Unknown]
  - Fatigue [Not Recovered/Not Resolved]
